FAERS Safety Report 7400337-8 (Version None)
Quarter: 2011Q2

REPORT INFORMATION
  Report Type: 
  Country: None (occurrence: None)
  Receive Date: 20110407
  Receipt Date: 20110330
  Transmission Date: 20111010
  Serious: Yes (Other)
  Sender: FDA-Public Use
  Company Number: DE-JNJFOC-20101208684

PATIENT
  Age: 32 Year
  Sex: Female

DRUGS (10)
  1. PALEXIA [Suspect]
     Indication: PRODUCT USED FOR UNKNOWN INDICATION
     Route: 048
  2. PALEXIA [Suspect]
     Route: 048
  3. TRAMAL LONG [Concomitant]
     Indication: PRODUCT USED FOR UNKNOWN INDICATION
     Route: 065
  4. SERETIDE [Concomitant]
     Indication: ASTHMA
  5. PALEXIA [Suspect]
     Route: 048
  6. MOVIPREP [Concomitant]
     Indication: CONSTIPATION
     Route: 065
  7. ALBUTEROL SULFATE AUTOHALER [Concomitant]
     Indication: ASTHMA
  8. XALATAN [Concomitant]
     Indication: GLAUCOMA
     Route: 047
  9. LYRICA [Concomitant]
     Indication: PRODUCT USED FOR UNKNOWN INDICATION
     Route: 065
  10. MAGNETRANS [Concomitant]

REACTIONS (20)
  - THROAT TIGHTNESS [None]
  - DIZZINESS [None]
  - CHEST DISCOMFORT [None]
  - NAUSEA [None]
  - HUNGER [None]
  - VISION BLURRED [None]
  - FATIGUE [None]
  - PAIN [None]
  - CONSTIPATION [None]
  - DRY THROAT [None]
  - HEART RATE INCREASED [None]
  - TREMOR [None]
  - DYSPNOEA [None]
  - DRY MOUTH [None]
  - DRUG INEFFECTIVE [None]
  - PRURITUS GENERALISED [None]
  - HEADACHE [None]
  - FEELING COLD [None]
  - INCREASED UPPER AIRWAY SECRETION [None]
  - SOMNOLENCE [None]
